FAERS Safety Report 14511175 (Version 2)
Quarter: 2018Q1

REPORT INFORMATION
  Report Type: Spontaneous
  Country: US (occurrence: US)
  Receive Date: 20180209
  Receipt Date: 20180323
  Transmission Date: 20180509
  Serious: Yes (Hospitalization)
  Sender: FDA-Public Use
  Company Number: US-WEST-WARD PHARMACEUTICALS CORP.-US-H14001-18-00796

PATIENT
  Age: 16 Year
  Sex: Female

DRUGS (1)
  1. KETAMINE HYDROCHLORIDE. [Suspect]
     Active Substance: KETAMINE HYDROCHLORIDE
     Indication: SEDATIVE THERAPY
     Route: 042
     Dates: start: 20180123

REACTIONS (6)
  - Dyspnoea [Recovered/Resolved]
  - Disorientation [Recovered/Resolved]
  - Condition aggravated [Recovered/Resolved]
  - Abnormal behaviour [Recovered/Resolved]
  - Panic attack [Recovered/Resolved]
  - Nystagmus [Recovered/Resolved]

NARRATIVE: CASE EVENT DATE: 20180123
